FAERS Safety Report 4578731-2 (Version None)
Quarter: 2005Q1

REPORT INFORMATION
  Report Type: 
  Country: None (occurrence: None)
  Receive Date: 20050211
  Receipt Date: 20050131
  Transmission Date: 20050727
  Serious: Yes (Hospitalization)
  Sender: FDA-Public Use
  Company Number: JP-GLAXOSMITHKLINE-B0369815A

PATIENT
  Age: 75 Year
  Sex: Male
  Weight: 40 kg

DRUGS (8)
  1. ARTIST [Suspect]
     Indication: ANGINA PECTORIS
     Dosage: 2.5MG PER DAY
     Route: 048
     Dates: start: 20041022, end: 20050128
  2. ZYLORIC [Suspect]
     Dosage: 100MG PER DAY
     Route: 048
     Dates: start: 20041210, end: 20050122
  3. ASPIRIN [Suspect]
     Indication: ANGINA PECTORIS
     Dosage: 100MG PER DAY
     Route: 048
     Dates: start: 20041022, end: 20050131
  4. WARFARIN SODIUM [Suspect]
     Dosage: 4MG PER DAY
     Route: 048
     Dates: start: 20040724, end: 20050122
  5. DIOVAN [Suspect]
     Indication: CARDIAC FAILURE CHRONIC
     Dosage: 80MG PER DAY
     Route: 048
     Dates: start: 20041210, end: 20050122
  6. LASIX [Suspect]
     Indication: CARDIAC FAILURE CHRONIC
     Dosage: 40MG PER DAY
     Route: 065
     Dates: start: 20041022, end: 20050131
  7. GASTROM [Suspect]
     Dosage: 1.5G TWICE PER DAY
     Route: 048
     Dates: start: 20041124, end: 20050122
  8. NITRODERM [Concomitant]
     Route: 062

REACTIONS (3)
  - DRUG ERUPTION [None]
  - HEPATIC FUNCTION ABNORMAL [None]
  - PLATELET COUNT DECREASED [None]
